FAERS Safety Report 17346222 (Version 1)
Quarter: 2020Q1

REPORT INFORMATION
  Report Type: Report from Study
  Country: US (occurrence: US)
  Receive Date: 20200129
  Receipt Date: 20200129
  Transmission Date: 20200409
  Serious: Yes (Other)
  Sender: FDA-Public Use
  Company Number: US-BIOMARINAP-US-2020-128070

PATIENT
  Age: 14 Year
  Sex: Female

DRUGS (1)
  1. BRINEURA [Suspect]
     Active Substance: CERLIPONASE ALFA
     Indication: NEURONAL CEROID LIPOFUSCINOSIS
     Route: 020

REACTIONS (10)
  - Infusion related reaction [Unknown]
  - Nausea [Unknown]
  - Anxiety [Unknown]
  - Headache [Unknown]
  - Confusional state [Unknown]
  - Hallucination [Unknown]
  - Sensory disturbance [Unknown]
  - Vertigo [Unknown]
  - Deja vu [Unknown]
  - Pyrexia [Unknown]
